FAERS Safety Report 4923840-9 (Version None)
Quarter: 2006Q1

REPORT INFORMATION
  Report Type: 
  Country: None (occurrence: None)
  Receive Date: 20060227
  Receipt Date: 20050609
  Transmission Date: 20060701
  Serious: Yes (Hospitalization, Disabling, Other)
  Sender: FDA-Public Use
  Company Number: US-MERCK-0506USA01568

PATIENT
  Age: 60 Year
  Sex: Female
  Weight: 90 kg

DRUGS (7)
  1. VIOXX [Suspect]
     Indication: BACK PAIN
     Route: 048
     Dates: start: 20000101, end: 20040930
  2. VIOXX [Suspect]
     Route: 048
     Dates: start: 20000101, end: 20040930
  3. VIOXX [Suspect]
     Indication: MIGRAINE
     Route: 048
     Dates: start: 20000101, end: 20040930
  4. VIOXX [Suspect]
     Route: 048
     Dates: start: 20000101, end: 20040930
  5. PREMARIN [Concomitant]
     Indication: HORMONE REPLACEMENT THERAPY
     Route: 065
     Dates: start: 19960101, end: 20020101
  6. DARVOCET-N 50 [Concomitant]
     Route: 065
  7. VICODIN [Concomitant]
     Route: 065

REACTIONS (15)
  - ANEURYSM [None]
  - ARTERIOSCLEROSIS [None]
  - BACK DISORDER [None]
  - CARDIAC DISORDER [None]
  - CEREBRAL INFARCTION [None]
  - CHEST PAIN [None]
  - DIZZINESS [None]
  - FALL [None]
  - JOINT SPRAIN [None]
  - MENTAL STATUS CHANGES [None]
  - MITRAL VALVE PROLAPSE [None]
  - PANIC DISORDER [None]
  - SLEEP APNOEA SYNDROME [None]
  - THROMBOSIS [None]
  - URINARY TRACT INFECTION [None]
